FAERS Safety Report 4279665-3 (Version None)
Quarter: 2004Q1

REPORT INFORMATION
  Report Type: 
  Country: None (occurrence: None)
  Receive Date: 20040127
  Receipt Date: 20040127
  Transmission Date: 20041129
  Serious: Yes (Disabling, Other)
  Sender: FDA-Public Use
  Company Number: None

PATIENT
  Age: 12 Year
  Sex: Female
  Weight: 92.0802 kg

DRUGS (2)
  1. PAXIL [Suspect]
     Indication: CONNECTIVE TISSUE DISORDER
     Dosage: 20 MG 1 TIME DAI ORAL
     Route: 048
     Dates: start: 19920409, end: 20040530
  2. PAXIL [Suspect]
     Indication: FIBROMYALGIA
     Dosage: 20 MG 1 TIME DAI ORAL
     Route: 048
     Dates: start: 19920409, end: 20040530

REACTIONS (6)
  - ACTIVITIES OF DAILY LIVING IMPAIRED [None]
  - ASTHENIA [None]
  - FATIGUE [None]
  - MEDICATION ERROR [None]
  - NERVOUS SYSTEM DISORDER [None]
  - PARAESTHESIA [None]
